FAERS Safety Report 17675513 (Version 3)
Quarter: 2020Q2

REPORT INFORMATION
  Report Type: Spontaneous
  Country: US (occurrence: US)
  Receive Date: 20200416
  Receipt Date: 20200424
  Transmission Date: 20200714
  Serious: Yes (Hospitalization, Other)
  Sender: FDA-Public Use
  Company Number: US-SUNOVION-2020SUN001146

PATIENT
  Age: 80 Year
  Sex: Female
  Weight: 63.95 kg

DRUGS (1)
  1. APTIOM [Suspect]
     Active Substance: ESLICARBAZEPINE ACETATE
     Indication: PARTIAL SEIZURES
     Dosage: 800 MG, QD
     Route: 048
     Dates: start: 20190806, end: 20200411

REACTIONS (3)
  - Loss of consciousness [Unknown]
  - Hyponatraemia [Recovering/Resolving]
  - Seizure [Unknown]

NARRATIVE: CASE EVENT DATE: 20200407
